FAERS Safety Report 13224789 (Version 3)
Quarter: 2017Q1

REPORT INFORMATION
  Report Type: Spontaneous
  Country: IT (occurrence: IT)
  Receive Date: 20170213
  Receipt Date: 20170316
  Transmission Date: 20170428
  Serious: Yes (Death, Hospitalization, Other)
  Sender: FDA-Public Use
  Company Number: IT-BRISTOL-MYERS SQUIBB COMPANY-BMS-2017-010468

PATIENT
  Age: 54 Year
  Sex: Male
  Weight: 75 kg

DRUGS (1)
  1. COUMADIN [Suspect]
     Active Substance: WARFARIN SODIUM
     Indication: DEEP VEIN THROMBOSIS
     Dosage: 5 MG, PRN
     Route: 048
     Dates: end: 20170129

REACTIONS (5)
  - Splenic infarction [Fatal]
  - Cardiac tamponade [Fatal]
  - Pericardial drainage [Unknown]
  - Resuscitation [Unknown]
  - Metastases to heart [Fatal]

NARRATIVE: CASE EVENT DATE: 20170130
